FAERS Safety Report 11388109 (Version 2)
Quarter: 2015Q4

REPORT INFORMATION
  Report Type: Spontaneous
  Country: GB (occurrence: GB)
  Receive Date: 20150817
  Receipt Date: 20151106
  Transmission Date: 20160304
  Serious: Yes (Other)
  Sender: FDA-Public Use
  Company Number: PHHY2015GB094992

PATIENT
  Sex: Female

DRUGS (3)
  1. BISOPROLOL [Suspect]
     Active Substance: BISOPROLOL
     Dosage: 2.5 MG, QD
     Route: 048
     Dates: start: 201309, end: 201505
  2. LEVOTHYROXINE. [Concomitant]
     Active Substance: LEVOTHYROXINE
     Indication: PRODUCT USED FOR UNKNOWN INDICATION
     Route: 065
  3. BISOPROLOL [Suspect]
     Active Substance: BISOPROLOL
     Indication: HEART RATE ABNORMAL
     Dosage: 2.5 MG, QD
     Route: 048
     Dates: start: 201309, end: 201505

REACTIONS (18)
  - Muscle disorder [Not Recovered/Not Resolved]
  - Fatigue [Not Recovered/Not Resolved]
  - Dry eye [Not Recovered/Not Resolved]
  - Dysgraphia [Unknown]
  - Abdominal discomfort [Not Recovered/Not Resolved]
  - Bradyphrenia [Unknown]
  - Logorrhoea [Unknown]
  - Speech disorder [Unknown]
  - Malaise [Not Recovered/Not Resolved]
  - Peripheral coldness [Not Recovered/Not Resolved]
  - Suicidal ideation [Recovered/Resolved]
  - Gait disturbance [Not Recovered/Not Resolved]
  - Impulsive behaviour [Unknown]
  - Decreased appetite [Not Recovered/Not Resolved]
  - Abdominal pain [Not Recovered/Not Resolved]
  - Pruritus [Not Recovered/Not Resolved]
  - Constipation [Not Recovered/Not Resolved]
  - Poor peripheral circulation [Not Recovered/Not Resolved]
